FAERS Safety Report 6070620-X (Version None)
Quarter: 2009Q1

REPORT INFORMATION
  Report Type: 
  Country: None (occurrence: None)
  Receive Date: 20090209
  Receipt Date: 20090128
  Transmission Date: 20090719
  Serious: Yes (Hospitalization)
  Sender: FDA-Public Use
  Company Number: FR-PFIZER INC-2009166132

PATIENT

DRUGS (11)
  1. ATARAX [Suspect]
     Dosage: 100 MG, 1X/DAY
     Route: 048
     Dates: end: 20080830
  2. DEPAKOTE [Suspect]
     Dosage: 500 MG, UNK
     Route: 048
     Dates: end: 20080830
  3. STABLON [Suspect]
     Dosage: 12.5 MG, 3X/DAY
     Route: 048
     Dates: end: 20080830
  4. ALLOPURINOL [Suspect]
     Dosage: 1 DF, 1X/DAY
     Route: 048
     Dates: end: 20080830
  5. LOXEN [Suspect]
     Dosage: 50 MG, 1X/DAY
     Route: 048
     Dates: end: 20080830
  6. NAXY [Suspect]
     Dosage: 500 MG, 2X/DAY
     Route: 048
     Dates: end: 20080830
  7. ATHYMIL [Concomitant]
     Dosage: 30 MG, 1X/DAY
     Route: 048
     Dates: end: 20080830
  8. ATHYMIL [Concomitant]
     Dosage: UNK
     Route: 048
     Dates: start: 20080908
  9. TAHOR [Concomitant]
     Dosage: 10 MG, 1X/DAY
     Route: 048
     Dates: end: 20080906
  10. TAHOR [Concomitant]
     Dosage: UNK
     Route: 048
  11. SERESTA [Concomitant]
     Dosage: 10 MG, UNK
     Route: 048

REACTIONS (3)
  - CONFUSIONAL STATE [None]
  - DISTURBANCE IN ATTENTION [None]
  - HYPONATRAEMIA [None]
